FAERS Safety Report 6625895-2 (Version None)
Quarter: 2010Q1

REPORT INFORMATION
  Report Type: 
  Country: None (occurrence: None)
  Receive Date: 20100310
  Receipt Date: 20100309
  Transmission Date: 20100710
  Serious: Yes (Other)
  Sender: FDA-Public Use
  Company Number: GXKR2010DE02734

PATIENT
  Age: 8 Week
  Sex: Female
  Weight: 4.9 kg

DRUGS (1)
  1. AMITRIPTYLINE (NGX) [Suspect]
     Indication: DRUG NAME CONFUSION
     Dosage: 25 MG, QD
     Route: 048
     Dates: start: 20100121, end: 20100121

REACTIONS (2)
  - METABOLIC ACIDOSIS [None]
  - TRANSAMINASES INCREASED [None]
